FAERS Safety Report 4556935-2 (Version None)
Quarter: 2005Q1

REPORT INFORMATION
  Report Type: 
  Country: None (occurrence: None)
  Receive Date: 20050118
  Receipt Date: 20050105
  Transmission Date: 20050727
  Serious: Yes (Death, Hospitalization)
  Sender: FDA-Public Use
  Company Number: RENA-11222

PATIENT
  Age: 71 Year
  Sex: Male

DRUGS (3)
  1. PHOSBLOCK - 250 MG TABLET [Suspect]
     Indication: HYPERPHOSPHATAEMIA
     Dosage: 2.25 G DAILY PO
     Route: 048
     Dates: start: 20040915, end: 20041029
  2. FUROSEMIDE [Concomitant]
  3. SENNOSIDE [Concomitant]

REACTIONS (5)
  - ABDOMINAL PAIN [None]
  - CARDIO-RESPIRATORY ARREST [None]
  - CONSTIPATION [None]
  - INTESTINAL PERFORATION [None]
  - MEDICAL DEVICE COMPLICATION [None]
